FAERS Safety Report 15267026 (Version 5)
Quarter: 2020Q4

REPORT INFORMATION
  Report Type: Spontaneous
  Country: FR (occurrence: FR)
  Receive Date: 20180810
  Receipt Date: 20201002
  Transmission Date: 20210113
  Serious: Yes (Death, Life-Threatening, Other)
  Sender: FDA-Public Use
  Company Number: PHHY2018FR069118

PATIENT
  Age: 26 Year
  Sex: Female
  Weight: 97 kg

DRUGS (14)
  1. DELURSAN [Suspect]
     Active Substance: URSODIOL
     Indication: PROPHYLAXIS AGAINST GRAFT VERSUS HOST DISEASE
     Route: 065
  2. FLUDARABINE [Suspect]
     Active Substance: FLUDARABINE PHOSPHATE
     Indication: STEM CELL TRANSPLANT
     Dosage: 78 MG, QD (CONDITIONING REGIMEN; DAY 5, 4, 3 AND 2; 40 MG/M2; FLUDARABINE 78 MG + 0.9% SODIUM CHLORI
     Route: 041
     Dates: start: 20180526, end: 20180529
  3. UROMITEXAN [Suspect]
     Active Substance: MESNA
     Indication: PRODUCT USED FOR UNKNOWN INDICATION
     Dosage: 792 MG (ON DAY 3, 4 AND 5; 9 MG/KG)
     Route: 041
     Dates: start: 20180603, end: 20180605
  4. G-CSF [Concomitant]
     Active Substance: GRANULOCYTE COLONY-STIMULATING FACTOR NOS
     Indication: PROPHYLAXIS
     Route: 065
  5. CICLOSPORIN [Suspect]
     Active Substance: CYCLOSPORINE
     Indication: PROPHYLAXIS AGAINST GRAFT VERSUS HOST DISEASE
     Dosage: UNK
     Route: 065
  6. CYCLOPHOSPHAMIDE. [Suspect]
     Active Substance: CYCLOPHOSPHAMIDE
     Indication: PROPHYLAXIS AGAINST GRAFT VERSUS HOST DISEASE
     Dosage: 4400 MG, QD (CYCLE 1 DAY 3, 50 MG/KG, ENDOXAN 4400 MG + 5% SODIUM CHLORIDE 500 ML)
     Route: 041
     Dates: start: 20180603, end: 20180604
  7. SODIUM CHLORIDE. [Suspect]
     Active Substance: SODIUM CHLORIDE
     Dosage: 563 ML, QD (CONDITIONING REGIMEN; DAY 5, 4 AND 3; BUSILVEX 281.5 MG + 0.9% SODIUM CHLORIDE 563 ML)
     Route: 041
     Dates: start: 20180526, end: 20180528
  8. CICLOSPORIN [Suspect]
     Active Substance: CYCLOSPORINE
     Dosage: TARGET 200 TO 300 NG/L, FROM DAY 5 (24 HOURS AFTER LAST DOSE OF CYCLOPHOSPHAMIDE), DECREASE FROM 3 M
     Route: 042
     Dates: start: 20180605
  9. SODIUM CHLORIDE. [Suspect]
     Active Substance: SODIUM CHLORIDE
     Dosage: 100 ML, QD (CONDITIONING REGIMEN; DAY 5, 4, 3 AND 2; FLUDARABINE 78 MG + 0.9% SODIUM CHLORIDE 100 ML
     Route: 041
     Dates: start: 20180526, end: 20180529
  10. SODIUM CHLORIDE. [Suspect]
     Active Substance: SODIUM CHLORIDE
     Dosage: 500 ML, QD (CYCLE 1 DAY 3, ENDOXAN 4400 MG + 5% SODIUM CHLORIDE 500 ML)
     Route: 041
     Dates: start: 20180603, end: 20180604
  11. SODIUM CHLORIDE. [Suspect]
     Active Substance: SODIUM CHLORIDE
     Indication: MEDICATION DILUTION
     Dosage: 500 ML, QD (CONDITIONING REGIMEN; DAY 7 AND 6; THIOTEPA 440 MG + 0.9% SODIUM CHLORIDE 500 ML )
     Route: 041
     Dates: start: 20180524, end: 20180525
  12. CELLCEPT [Suspect]
     Active Substance: MYCOPHENOLATE MOFETIL\MYCOPHENOLATE MOFETIL HYDROCHLORIDE
     Indication: PROPHYLAXIS AGAINST GRAFT VERSUS HOST DISEASE
     Dosage: 45 MG/KG, QD (FROM DAY 5 (24 HOURS AFTER LAST DOSE OF CYCLOPHOSPHAMIDE) UNTIL DAY 35, MAX: 1G, TID)
     Route: 042
     Dates: start: 20180605
  13. THIOTEPA. [Suspect]
     Active Substance: THIOTEPA
     Indication: STEM CELL TRANSPLANT
     Dosage: 440 MG, QD (CONDITIONING REGIMEN; DAY 7 AND 6; 5 MG/KG; THIOTEPA 440 MG + 0.9% SODIUM CHLORIDE 500 M
     Route: 041
     Dates: start: 20180524, end: 20180525
  14. BUSILVEX [Suspect]
     Active Substance: BUSULFAN
     Indication: STEM CELL TRANSPLANT
     Dosage: 281.5 MG, QD (CONDITIONING REGIMEN; DAY 5, 4 AND 3; 3.2 MG/KG, BUSILVEX 281.5 MG + 0.9% SODIUM CHLOR
     Route: 041
     Dates: start: 20180526, end: 20180528

REACTIONS (21)
  - Febrile bone marrow aplasia [Unknown]
  - Dyspnoea [Unknown]
  - Pneumonia staphylococcal [Unknown]
  - Urinary tract infection [Unknown]
  - Peritonitis [Unknown]
  - Sepsis [Unknown]
  - Weight increased [Unknown]
  - Hepatomegaly [Unknown]
  - Pneumothorax [Recovered/Resolved]
  - Pyelonephritis [Unknown]
  - Atelectasis [Unknown]
  - Mucosal inflammation [Unknown]
  - Nausea [Unknown]
  - Pericardial effusion [Recovered/Resolved]
  - Cardiogenic shock [Unknown]
  - Pelvic fluid collection [Unknown]
  - Diplopia [Unknown]
  - Myocarditis [Fatal]
  - Renal failure [Unknown]
  - Disease recurrence [Unknown]
  - Candida infection [Unknown]

NARRATIVE: CASE EVENT DATE: 201806
